FAERS Safety Report 24965622 (Version 1)
Quarter: 2025Q1

REPORT INFORMATION
  Report Type: Spontaneous
  Country: AU (occurrence: AU)
  Receive Date: 20250213
  Receipt Date: 20250213
  Transmission Date: 20250408
  Serious: Yes (Hospitalization)
  Sender: MYLAN
  Company Number: AU-MYLANLABS-2025M1011943

PATIENT
  Age: 73 Year
  Sex: Male

DRUGS (2)
  1. METHOTREXATE [Suspect]
     Active Substance: METHOTREXATE
     Indication: Crohn^s disease
     Dosage: 10 MILLIGRAM, QW
     Route: 065
  2. INFLIXIMAB [Suspect]
     Active Substance: INFLIXIMAB
     Indication: Crohn^s disease
     Route: 065

REACTIONS (6)
  - Epstein Barr virus positive mucocutaneous ulcer [Recovering/Resolving]
  - Iron deficiency anaemia [Recovering/Resolving]
  - Haemodynamic instability [Recovering/Resolving]
  - Gastrointestinal haemorrhage [Recovering/Resolving]
  - Drug ineffective for unapproved indication [Unknown]
  - Off label use [Recovering/Resolving]
